FAERS Safety Report 8598963-6 (Version None)
Quarter: 2012Q3

REPORT INFORMATION
  Report Type: 
  Country: None (occurrence: None)
  Receive Date: 20120806
  Receipt Date: 20120806
  Transmission Date: 20120928
  Serious: Yes (Hospitalization, Other)
  Sender: FDA-Public Use
  Company Number: None

PATIENT
  Sex: Female

DRUGS (1)
  1. JANUVIA [Suspect]
     Indication: BLOOD GLUCOSE DECREASED
     Dosage: PO
     Route: 048

REACTIONS (4)
  - ABDOMINAL PAIN UPPER [None]
  - PANCREATITIS [None]
  - VOMITING [None]
  - DIARRHOEA [None]
